FAERS Safety Report 22032545 (Version 1)
Quarter: 2023Q1

REPORT INFORMATION
  Report Type: Spontaneous
  Country: CH (occurrence: CH)
  Receive Date: 20230224
  Receipt Date: 20230224
  Transmission Date: 20230418
  Serious: Yes (Other)
  Sender: FDA-Public Use
  Company Number: CH-Stemline Therapeutics, Inc.-2022ST000213

PATIENT

DRUGS (7)
  1. ELZONRIS [Suspect]
     Active Substance: TAGRAXOFUSP-ERZS
     Indication: Product used for unknown indication
     Dosage: DAY 1 TO DAY 5 EVERY 21 DAYS, CYCLE 1
     Route: 042
  2. ELZONRIS [Suspect]
     Active Substance: TAGRAXOFUSP-ERZS
     Dosage: DAY 1 TO DAY 5 EVERY 21 DAYS, CYCLE 2
     Route: 042
  3. ELZONRIS [Suspect]
     Active Substance: TAGRAXOFUSP-ERZS
     Dosage: DAY 1 TO DAY 5 EVERY 21 DAYS, CYCLE 3
     Route: 042
  4. ELZONRIS [Suspect]
     Active Substance: TAGRAXOFUSP-ERZS
     Dosage: DAY 1 TO DAY 5 EVERY 21 DAYS, CYCLE 4
     Route: 042
  5. ELZONRIS [Suspect]
     Active Substance: TAGRAXOFUSP-ERZS
     Dosage: DAY 1 TO DAY 5 EVERY 21 DAYS, CYCLE 5
     Route: 042
  6. ELZONRIS [Suspect]
     Active Substance: TAGRAXOFUSP-ERZS
     Dosage: DAY 1 TO DAY 5 EVERY 21 DAYS, CYCLE 6
     Route: 042
  7. ELZONRIS [Suspect]
     Active Substance: TAGRAXOFUSP-ERZS
     Dosage: DAY 1 TO DAY 5 EVERY 21 DAYS, CYCLE 7
     Route: 042

REACTIONS (1)
  - Capillary leak syndrome [Recovered/Resolved with Sequelae]
